FAERS Safety Report 15067952 (Version 1)
Quarter: 2018Q2

REPORT INFORMATION
  Report Type: Report from Study
  Country: JP (occurrence: JP)
  Receive Date: 20180626
  Receipt Date: 20180626
  Transmission Date: 20180711
  Serious: Yes (Hospitalization)
  Sender: FDA-Public Use
  Company Number: PHJP2018JP012838

PATIENT
  Age: 6 Year
  Sex: Female
  Weight: 19 kg

DRUGS (14)
  1. ILARIS [Suspect]
     Active Substance: CANAKINUMAB
     Dosage: 80 MG, UNK
     Route: 058
     Dates: start: 20180314
  2. ALFAROL [Concomitant]
     Active Substance: ALFACALCIDOL
     Indication: PROPHYLAXIS
     Dosage: UNK
     Route: 048
  3. ILARIS [Suspect]
     Active Substance: CANAKINUMAB
     Dosage: 80 MG, UNK
     Route: 058
     Dates: start: 20180606
  4. BAKTAR [Concomitant]
     Active Substance: SULFAMETHOXAZOLE\TRIMETHOPRIM
     Indication: PROPHYLAXIS
     Dosage: UNK
     Route: 048
  5. ILARIS [Suspect]
     Active Substance: CANAKINUMAB
     Dosage: 80 MG, UNK
     Route: 058
     Dates: start: 20180104
  6. ILARIS [Suspect]
     Active Substance: CANAKINUMAB
     Dosage: 80 MG, UNK
     Route: 058
     Dates: start: 20180214
  7. ACTEMRA [Suspect]
     Active Substance: TOCILIZUMAB
     Indication: FAMILIAL MEDITERRANEAN FEVER
     Dosage: UNK
     Route: 065
     Dates: start: 20171220, end: 20180226
  8. PROGRAF [Suspect]
     Active Substance: TACROLIMUS\TACROLIMUS ANHYDROUS
     Indication: FAMILIAL MEDITERRANEAN FEVER
     Dosage: UNK
     Route: 048
  9. DEXTROMETHORPHAN HYDROBROMIDE. [Concomitant]
     Active Substance: DEXTROMETHORPHAN HYDROBROMIDE
     Indication: PROPHYLAXIS
     Dosage: UNK
     Route: 048
  10. FAMOTIDINE. [Concomitant]
     Active Substance: FAMOTIDINE
     Indication: PROPHYLAXIS
     Dosage: UNK
     Route: 048
  11. CARBOCISTEINE [Concomitant]
     Active Substance: CARBOCYSTEINE
     Indication: PROPHYLAXIS
     Dosage: UNK
     Route: 048
  12. ILARIS [Suspect]
     Active Substance: CANAKINUMAB
     Dosage: 80 MG, UNK
     Route: 058
     Dates: start: 20180411
  13. ILARIS [Suspect]
     Active Substance: CANAKINUMAB
     Indication: FAMILIAL MEDITERRANEAN FEVER
     Dosage: 40 MG, UNK
     Route: 058
     Dates: start: 20171220
  14. PREDONINE [Suspect]
     Active Substance: PREDNISOLONE
     Indication: FAMILIAL MEDITERRANEAN FEVER
     Dosage: UNK
     Route: 048

REACTIONS (2)
  - Varicella [Unknown]
  - Influenza [Recovering/Resolving]

NARRATIVE: CASE EVENT DATE: 20171220
